FAERS Safety Report 9093605 (Version 1)
Quarter: 2013Q1

REPORT INFORMATION
  Report Type: Spontaneous
  Country: US (occurrence: None)
  Receive Date: 20130213
  Receipt Date: 20130213
  Transmission Date: 20140127
  Serious: No
  Sender: FDA-Public Use
  Company Number: None

PATIENT
  Age: 45 Year
  Sex: Female
  Weight: 117.94 kg

DRUGS (1)
  1. PANTOPRAZOLE, 40 MG [Suspect]
     Indication: GASTROOESOPHAGEAL REFLUX DISEASE
     Route: 048
     Dates: start: 2008, end: 2008

REACTIONS (3)
  - Nausea [None]
  - Drug ineffective [None]
  - Product substitution issue [None]
